FAERS Safety Report 8334063-8 (Version None)
Quarter: 2012Q2

REPORT INFORMATION
  Report Type: 
  Country: None (occurrence: None)
  Receive Date: 20120503
  Receipt Date: 20120419
  Transmission Date: 20120825
  Serious: Yes (Other)
  Sender: FDA-Public Use
  Company Number: SE-ROCHE-1065122

PATIENT
  Age: 45 Year
  Sex: Male

DRUGS (2)
  1. MABTHERA [Suspect]
     Indication: WEGENER'S GRANULOMATOSIS
  2. PREDNISOLONE [Concomitant]

REACTIONS (1)
  - WEGENER'S GRANULOMATOSIS [None]
